FAERS Safety Report 25856807 (Version 1)
Quarter: 2025Q3

REPORT INFORMATION
  Report Type: Spontaneous
  Country: EU (occurrence: EU)
  Receive Date: 20250929
  Receipt Date: 20250929
  Transmission Date: 20251021
  Serious: Yes (Hospitalization, Other)
  Sender: TEVA
  Company Number: None

PATIENT
  Age: 40 Year
  Sex: Female

DRUGS (3)
  1. TOPIRAMATE [Suspect]
     Active Substance: TOPIRAMATE
     Indication: Migraine
     Dosage: TOPIRAMATE ACTAVIS
     Route: 065
     Dates: start: 20250826, end: 20250828
  2. TOPIRAMATE [Suspect]
     Active Substance: TOPIRAMATE
     Indication: Migraine
     Dosage: TOPIRAMATE ACTAVIS
     Route: 065
     Dates: start: 20250819, end: 20250825
  3. PREGABALIN [Concomitant]
     Active Substance: PREGABALIN
     Indication: Neuralgia
     Route: 065
     Dates: start: 20250730

REACTIONS (23)
  - Hallucination [Recovered/Resolved]
  - Disturbance in attention [Recovering/Resolving]
  - Irritability [Unknown]
  - Aggression [Recovered/Resolved]
  - Psychotic disorder [Recovered/Resolved]
  - Movement disorder [Recovered/Resolved]
  - Tremor [Recovered/Resolved]
  - Peripheral coldness [Recovered/Resolved]
  - Speech disorder [Recovered/Resolved]
  - Nausea [Unknown]
  - Feeling cold [Unknown]
  - Confusional state [Unknown]
  - Anxiety [Recovering/Resolving]
  - Discomfort [Unknown]
  - Suicidal ideation [Recovered/Resolved]
  - Memory impairment [Recovering/Resolving]
  - Sensation of foreign body [Unknown]
  - Sleep disorder [Recovering/Resolving]
  - Crying [Recovered/Resolved]
  - Cyanosis [Recovered/Resolved]
  - Personality change [Recovered/Resolved]
  - Food aversion [Recovering/Resolving]
  - Restlessness [Recovered/Resolved]

NARRATIVE: CASE EVENT DATE: 20250801
